FAERS Safety Report 8911871 (Version 2)
Quarter: 2013Q1

REPORT INFORMATION
  Report Type: Report from Study
  Country: GR (occurrence: GR)
  Receive Date: 20121115
  Receipt Date: 20130114
  Transmission Date: 20140127
  Serious: Yes (Other)
  Sender: FDA-Public Use
  Company Number: GR-JNJFOC-20121105165

PATIENT
  Age: 28 Year
  Sex: Female

DRUGS (1)
  1. INFLIXIMAB, RECOMBINANT [Suspect]
     Indication: CROHN^S DISEASE
     Dosage: HAD ^3 COURSES^ OF INFLIXIMAB
     Route: 042

REACTIONS (5)
  - Drug resistance [Unknown]
  - Fistula [Not Recovered/Not Resolved]
  - Dehydration [Unknown]
  - Malnutrition [Unknown]
  - Diarrhoea [Not Recovered/Not Resolved]
